FAERS Safety Report 7501785-8 (Version None)
Quarter: 2011Q2

REPORT INFORMATION
  Report Type: 
  Country: None (occurrence: None)
  Receive Date: 20110523
  Receipt Date: 20110523
  Transmission Date: 20111010
  Serious: Yes (Life-Threatening)
  Sender: FDA-Public Use
  Company Number: None

PATIENT
  Age: 64 Year
  Sex: Male
  Weight: 123.3784 kg

DRUGS (2)
  1. LOVENOX [Suspect]
     Indication: ATRIAL FIBRILLATION
     Dosage: IN HOSPITAL RECORDS 2 X DAILY SQ
     Route: 058
     Dates: start: 20110214, end: 20110217
  2. COUMADIN [Suspect]
     Indication: ATRIAL FIBRILLATION
     Dosage: IN HOSPITAL RECORDS 2 X DAILY PO
     Route: 048
     Dates: start: 20110214, end: 20110510

REACTIONS (8)
  - PAROSMIA [None]
  - DRUG INEFFECTIVE [None]
  - DYSGEUSIA [None]
  - HYPERACUSIS [None]
  - URTICARIA [None]
  - PARANOIA [None]
  - PRURITUS [None]
  - NIGHTMARE [None]
